FAERS Safety Report 5631464-3 (Version None)
Quarter: 2008Q1

REPORT INFORMATION
  Report Type: 
  Country: None (occurrence: None)
  Receive Date: 20080219
  Receipt Date: 20080215
  Transmission Date: 20080703
  Serious: Yes (Other)
  Sender: FDA-Public Use
  Company Number: SE-ALLERGAN-0713964US

PATIENT
  Age: 29 Year
  Sex: Male

DRUGS (6)
  1. DYSPORT [Suspect]
     Indication: NEUROGENIC BLADDER
     Dosage: 500 UNITS, SINGLE
     Route: 030
     Dates: start: 20050201, end: 20050201
  2. DYSPORT [Suspect]
     Dosage: 500 UNITS, SINGLE
     Route: 030
     Dates: start: 20060201, end: 20060201
  3. BOTOX [Suspect]
     Indication: NEUROGENIC BLADDER
     Dosage: 200 UNITS, SINGLE
     Route: 030
     Dates: start: 20061001, end: 20061001
  4. BOTOX [Suspect]
     Dosage: 100 UNITS, SINGLE
     Route: 030
     Dates: start: 20070601, end: 20070601
  5. BOTOX [Suspect]
     Dosage: 200 UNITS, SINGLE
     Route: 030
     Dates: start: 20071201, end: 20071201
  6. ANTIMUSCARINICS [Concomitant]

REACTIONS (2)
  - DRUG INEFFECTIVE [None]
  - MUSCULAR WEAKNESS [None]
